FAERS Safety Report 21625511 (Version 1)
Quarter: 2022Q4

REPORT INFORMATION
  Report Type: Spontaneous
  Country: FR (occurrence: None)
  Receive Date: 20221122
  Receipt Date: 20221122
  Transmission Date: 20230112
  Serious: Yes (Other)
  Sender: FDA-Public Use
  Company Number: FR-ROCHE-3222232

PATIENT
  Sex: Male

DRUGS (11)
  1. CLONAZEPAM [Suspect]
     Active Substance: CLONAZEPAM
     Indication: Neuralgia
     Dosage: 5 DROP IN 1 DAY,2 DROPS NIGHT, MORNING, NOON, EVENING
     Route: 048
     Dates: start: 2019
  2. LAMOTRIGINE [Suspect]
     Active Substance: LAMOTRIGINE
     Indication: Neuralgia
     Dosage: 25MG MORNING AND EVENING
     Route: 048
     Dates: start: 20221018
  3. CARBAMAZEPINE [Suspect]
     Active Substance: CARBAMAZEPINE
     Indication: Product used for unknown indication
     Route: 048
     Dates: start: 2019
  4. AMITRIPTYLINE [Suspect]
     Active Substance: AMITRIPTYLINE
     Indication: Product used for unknown indication
     Dosage: 25 DROPS MORNING AND EVENING
     Route: 048
     Dates: start: 20221018
  5. AMITRIPTYLINE [Suspect]
     Active Substance: AMITRIPTYLINE
     Dosage: 25 DROPS IN THE EVENING
     Route: 048
     Dates: start: 2019
  6. AMITRIPTYLINE [Suspect]
     Active Substance: AMITRIPTYLINE
     Dosage: 25 DROPS IN THE EVENING
     Route: 048
  7. LIDOCAINE [Suspect]
     Active Substance: LIDOCAINE
     Indication: Product used for unknown indication
     Route: 065
  8. BACLOFEN [Concomitant]
     Active Substance: BACLOFEN
     Dosage: 1/2 MORNING AND EVENING
     Dates: start: 2019
  9. DALFAMPRIDINE [Concomitant]
     Active Substance: DALFAMPRIDINE
     Dosage: 10 DROPS IN THE MORNING AND EVENING
     Dates: start: 2019
  10. FOSFOMYCIN [Concomitant]
     Active Substance: FOSFOMYCIN
     Dosage: 1 SACHET EVERY 15 DAYS
  11. VITAMIN D [Concomitant]
     Active Substance: VITAMIN D NOS

REACTIONS (2)
  - Alanine aminotransferase increased [Not Recovered/Not Resolved]
  - Product use in unapproved indication [Unknown]

NARRATIVE: CASE EVENT DATE: 20190101
